FAERS Safety Report 25715873 (Version 1)
Quarter: 2025Q3

REPORT INFORMATION
  Report Type: Report from Study
  Country: US (occurrence: US)
  Receive Date: 20250822
  Receipt Date: 20250822
  Transmission Date: 20251021
  Serious: No
  Sender: SUNOVION
  Company Number: US-SUMITOMO PHARMA SWITZERLAND GMBH-2025SPA010721

PATIENT
  Age: 79 Year
  Sex: Male

DRUGS (9)
  1. ORGOVYX [Suspect]
     Active Substance: RELUGOLIX
     Indication: Prostate cancer
     Route: 048
  2. ORGOVYX [Suspect]
     Active Substance: RELUGOLIX
     Route: 048
  3. ASPIRIN [Concomitant]
     Active Substance: ASPIRIN
  4. ATORVASTATIN [Concomitant]
     Active Substance: ATORVASTATIN
  5. EZETIMIBE [Concomitant]
     Active Substance: EZETIMIBE
  6. LISINOPRIL [Concomitant]
     Active Substance: LISINOPRIL
  7. LOPERAMIDE [Concomitant]
     Active Substance: LOPERAMIDE
  8. Prostagenix [Concomitant]
  9. SILODOSIN [Concomitant]
     Active Substance: SILODOSIN

REACTIONS (1)
  - Diarrhoea [Unknown]
